FAERS Safety Report 26153483 (Version 1)
Quarter: 2025Q4

REPORT INFORMATION
  Report Type: Spontaneous
  Country: US (occurrence: US)
  Receive Date: 20251214
  Receipt Date: 20251214
  Transmission Date: 20260117
  Serious: Yes (Other)
  Sender: AMGEN
  Company Number: US-AMGEN-USASP2025241188

PATIENT
  Age: 42 Year
  Sex: Female

DRUGS (7)
  1. PREDNISONE [Suspect]
     Active Substance: PREDNISONE
     Indication: Hepatic cirrhosis
     Dosage: UNK
     Route: 065
  2. PREDNISONE [Suspect]
     Active Substance: PREDNISONE
     Dosage: UNK (TAPER)
     Route: 065
  3. FUROSEMIDE [Concomitant]
     Active Substance: FUROSEMIDE
     Dosage: UNK
  4. SPIRONOLACTONE [Concomitant]
     Active Substance: SPIRONOLACTONE
  5. NADOLOL [Concomitant]
     Active Substance: NADOLOL
  6. AZATHIOPRINE [Concomitant]
     Active Substance: AZATHIOPRINE
  7. URSODIOL [Concomitant]
     Active Substance: URSODIOL

REACTIONS (3)
  - Steroid diabetes [Unknown]
  - Ascites [Unknown]
  - Myopathy [Unknown]
